FAERS Safety Report 20437188 (Version 1)
Quarter: 2022Q1

REPORT INFORMATION
  Report Type: Spontaneous
  Country: US (occurrence: US)
  Receive Date: 20220207
  Receipt Date: 20220207
  Transmission Date: 20220423
  Serious: Yes (Other)
  Sender: FDA-Public Use
  Company Number: US-GLAXOSMITHKLINE- US2022GSK017906

PATIENT
  Sex: Male

DRUGS (8)
  1. ZANTAC [Suspect]
     Active Substance: RANITIDINE HYDROCHLORIDE
     Indication: Ulcer
     Dosage: UNK UNK, 2X/DAY
     Route: 065
     Dates: start: 199101, end: 201001
  2. ZANTAC [Suspect]
     Active Substance: RANITIDINE HYDROCHLORIDE
     Indication: Hiatus hernia
  3. ZANTAC [Suspect]
     Active Substance: RANITIDINE HYDROCHLORIDE
     Indication: Ulcer
     Dosage: UNK UNK, 2X/DAY
     Route: 065
     Dates: start: 199101, end: 201001
  4. ZANTAC [Suspect]
     Active Substance: RANITIDINE HYDROCHLORIDE
     Indication: Hiatus hernia
  5. RANITIDINE [Suspect]
     Active Substance: RANITIDINE
     Indication: Ulcer
     Dosage: UNK UNK, 2X/DAY
     Route: 065
     Dates: start: 199701, end: 201001
  6. RANITIDINE [Suspect]
     Active Substance: RANITIDINE
     Indication: Hiatus hernia
  7. RANITIDINE [Suspect]
     Active Substance: RANITIDINE
     Indication: Ulcer
     Dosage: UNK UNK, 2X/DAY
     Route: 065
     Dates: start: 199701, end: 201001
  8. RANITIDINE [Suspect]
     Active Substance: RANITIDINE
     Indication: Hiatus hernia

REACTIONS (1)
  - Oesophageal carcinoma [Unknown]
